FAERS Safety Report 20540484 (Version 2)
Quarter: 2024Q2

REPORT INFORMATION
  Report Type: Spontaneous
  Country: SI (occurrence: SI)
  Receive Date: 20220302
  Receipt Date: 20240625
  Transmission Date: 20240715
  Serious: Yes (Hospitalization)
  Sender: FDA-Public Use
  Company Number: SI-GRUNENTHAL-2021-271825

PATIENT
  Age: 23 Year
  Sex: Male
  Weight: 50.5 kg

DRUGS (3)
  1. TRAMADOL HYDROCHLORIDE [Suspect]
     Active Substance: TRAMADOL HYDROCHLORIDE
     Indication: Product used for unknown indication
     Dosage: UNK
     Route: 065
  2. AD26.ZEBOV-GP (RECOMBINANT) [Suspect]
     Active Substance: AD26.ZEBOV-GP (RECOMBINANT)
     Indication: Immunisation
     Dosage: UNK
     Route: 030
     Dates: start: 20180606, end: 20180606
  3. EBOLA VACCINE (MVA-BN-FILO [RECOMBINANT]) [Suspect]
     Active Substance: EBOLA VACCINE (MVA-BN-FILO [RECOMBINANT])
     Indication: Immunisation
     Dosage: UNK
     Route: 030
     Dates: start: 20180802, end: 20180802

REACTIONS (3)
  - Drug abuse [Unknown]
  - Substance-induced psychotic disorder [Not Recovered/Not Resolved]
  - Tinea versicolour [Unknown]

NARRATIVE: CASE EVENT DATE: 20210101
